FAERS Safety Report 4804049-6 (Version None)
Quarter: 2005Q4

REPORT INFORMATION
  Report Type: 
  Country: None (occurrence: None)
  Receive Date: 20051014
  Receipt Date: 20051005
  Transmission Date: 20060501
  Serious: Yes (Other)
  Sender: FDA-Public Use
  Company Number: 2005138836

PATIENT
  Sex: Male

DRUGS (2)
  1. BEXTRA [Suspect]
     Indication: ILL-DEFINED DISORDER
     Dates: start: 20031201, end: 20040601
  2. VIOXX [Suspect]
     Indication: ILL-DEFINED DISORDER
     Dates: start: 20031201, end: 20040601

REACTIONS (3)
  - CARDIAC DISORDER [None]
  - CATHETERISATION CARDIAC [None]
  - VASCULAR BYPASS GRAFT [None]
